FAERS Safety Report 25100179 (Version 1)
Quarter: 2025Q1

REPORT INFORMATION
  Report Type: Report from Study
  Country: US (occurrence: US)
  Receive Date: 20250320
  Receipt Date: 20250320
  Transmission Date: 20250409
  Serious: Yes (Other)
  Sender: ABBVIE
  Company Number: US-ABBVIE-6182982

PATIENT
  Age: 32 Year
  Sex: Male

DRUGS (2)
  1. CREON [Suspect]
     Active Substance: PANCRELIPASE AMYLASE\PANCRELIPASE LIPASE\PANCRELIPASE PROTEASE
     Indication: Product used for unknown indication
     Route: 048
     Dates: start: 20100801
  2. CREON [Suspect]
     Active Substance: PANCRELIPASE AMYLASE\PANCRELIPASE LIPASE\PANCRELIPASE PROTEASE
     Indication: Product used for unknown indication
     Route: 048
     Dates: start: 2011

REACTIONS (11)
  - Hernia [Recovered/Resolved]
  - Coeliac plexus block [Recovered/Resolved]
  - Biliary tract disorder [Recovered/Resolved]
  - Hernia [Recovered/Resolved]
  - Jaundice [Recovered/Resolved]
  - Diverticulum [Recovered/Resolved]
  - Pancreatolithiasis [Not Recovered/Not Resolved]
  - Condition aggravated [Not Recovered/Not Resolved]
  - Pancreatic disorder [Recovered/Resolved]
  - Biliary obstruction [Unknown]
  - Cholecystectomy [Recovered/Resolved]

NARRATIVE: CASE EVENT DATE: 20130101
